FAERS Safety Report 8438798-8 (Version None)
Quarter: 2012Q2

REPORT INFORMATION
  Report Type: 
  Country: None (occurrence: None)
  Receive Date: 20120615
  Receipt Date: 20120604
  Transmission Date: 20120825
  Serious: Yes (Other)
  Sender: FDA-Public Use
  Company Number: US-ACCORD-013718

PATIENT
  Sex: Male

DRUGS (1)
  1. QUETIAPINE FUMARATE [Suspect]
     Dates: start: 20120522

REACTIONS (5)
  - PRODUCT SUBSTITUTION ISSUE [None]
  - MOOD ALTERED [None]
  - COGNITIVE DISORDER [None]
  - NAUSEA [None]
  - DIZZINESS [None]
